FAERS Safety Report 9776203 (Version 2)
Quarter: 2013Q4

REPORT INFORMATION
  Report Type: Spontaneous
  Country: US (occurrence: US)
  Receive Date: 20131220
  Receipt Date: 20131220
  Transmission Date: 20140711
  Serious: Yes (Disabling, Other)
  Sender: FDA-Public Use
  Company Number: US-GE HEALTHCARE MEDICAL DIAGNOSTICS-OSCN-PR-1004S-0090

PATIENT
  Sex: Female

DRUGS (4)
  1. OMNISCAN [Suspect]
     Indication: BACK PAIN
     Dates: start: 20060801, end: 20060801
  2. OMNISCAN [Suspect]
     Indication: SPINAL PAIN
     Dates: start: 20060802, end: 20060802
  3. OMNISCAN [Suspect]
     Indication: SPINAL PAIN
  4. NO DRUG NAME [Suspect]

REACTIONS (10)
  - Nephrogenic systemic fibrosis [Not Recovered/Not Resolved]
  - Pain [Recovering/Resolving]
  - Asthenia [Not Recovered/Not Resolved]
  - Skin tightness [Recovering/Resolving]
  - Skin discolouration [Not Recovered/Not Resolved]
  - Mobility decreased [Recovering/Resolving]
  - Skin hypertrophy [Not Recovered/Not Resolved]
  - Skin plaque [Not Recovered/Not Resolved]
  - Fibrosis [Not Recovered/Not Resolved]
  - Muscle contracture [Not Recovered/Not Resolved]
